FAERS Safety Report 16442389 (Version 1)
Quarter: 2019Q2

REPORT INFORMATION
  Report Type: Report from Study
  Country: DE (occurrence: DE)
  Receive Date: 20190617
  Receipt Date: 20190617
  Transmission Date: 20190711
  Serious: Yes (Hospitalization)
  Sender: FDA-Public Use
  Company Number: DE-MYLANLABS-2019M1055595

PATIENT
  Sex: Female

DRUGS (17)
  1. METHOTREXATE. [Suspect]
     Active Substance: METHOTREXATE
     Dosage: 15 MG, UNK
     Route: 065
     Dates: start: 20111207
  2. METHOTREXATE. [Suspect]
     Active Substance: METHOTREXATE
     Dosage: 15 MG, UNK
     Route: 065
     Dates: start: 20150504
  3. METHOTREXATE. [Suspect]
     Active Substance: METHOTREXATE
     Dosage: 15MG, UNK
     Route: 065
     Dates: start: 20121029
  4. LEFLUNOMIDE. [Suspect]
     Active Substance: LEFLUNOMIDE
     Dosage: 10MG, UNK
     Route: 065
     Dates: start: 20120626
  5. METHOTREXATE. [Suspect]
     Active Substance: METHOTREXATE
     Dosage: 15MG, UNK
     Route: 065
     Dates: start: 20161202
  6. LEFLUNOMIDE. [Suspect]
     Active Substance: LEFLUNOMIDE
     Dosage: 10MG, UNK
     Route: 065
     Dates: start: 20111207
  7. METHOTREXATE. [Suspect]
     Active Substance: METHOTREXATE
     Indication: PRODUCT USED FOR UNKNOWN INDICATION
     Dosage: 15 MG, UNK
     Route: 065
     Dates: start: 20110601
  8. METHOTREXATE. [Suspect]
     Active Substance: METHOTREXATE
     Dosage: 15MG, UNK
     Route: 065
     Dates: start: 20121226
  9. METHOTREXATE. [Suspect]
     Active Substance: METHOTREXATE
     Dosage: 15 MG, UNK
     Route: 065
     Dates: start: 20170602
  10. LEFLUNOMIDE. [Suspect]
     Active Substance: LEFLUNOMIDE
     Dosage: 10 MG, UNK
     Route: 065
     Dates: start: 20121029
  11. METHOTREXATE. [Suspect]
     Active Substance: METHOTREXATE
     Dosage: 15MG, UNK
     Route: 065
     Dates: start: 20130624
  12. METHOTREXATE. [Suspect]
     Active Substance: METHOTREXATE
     Dosage: 15MG, UNK
     Route: 065
     Dates: start: 20160602
  13. LEFLUNOMIDE. [Suspect]
     Active Substance: LEFLUNOMIDE
     Indication: PRODUCT USED FOR UNKNOWN INDICATION
     Dosage: 10 MG, UNK
     Route: 065
     Dates: start: 20110601
  14. CIMZIA [Concomitant]
     Active Substance: CERTOLIZUMAB PEGOL
     Indication: PRODUCT USED FOR UNKNOWN INDICATION
     Dosage: 200 MG, UNK
     Route: 065
     Dates: start: 201403, end: 201403
  15. METHOTREXATE. [Suspect]
     Active Substance: METHOTREXATE
     Dosage: 15MG, UNK
     Route: 065
     Dates: start: 20151202
  16. METHOTREXATE. [Suspect]
     Active Substance: METHOTREXATE
     Dosage: 15MG, UNK
     Route: 065
     Dates: start: 20110928
  17. LEFLUNOMIDE. [Suspect]
     Active Substance: LEFLUNOMIDE
     Dosage: 10MG, UNK
     Route: 065
     Dates: start: 20110928

REACTIONS (3)
  - Nausea [Unknown]
  - Diarrhoea [Recovered/Resolved]
  - Radius fracture [Recovered/Resolved]

NARRATIVE: CASE EVENT DATE: 20170214
